FAERS Safety Report 12831829 (Version 2)
Quarter: 2017Q1

REPORT INFORMATION
  Report Type: Spontaneous
  Country: PT (occurrence: PT)
  Receive Date: 20161010
  Receipt Date: 20170324
  Transmission Date: 20170428
  Serious: Yes (Disabling)
  Sender: FDA-Public Use
  Company Number: PT-ROCHE-1797278

PATIENT
  Age: 66 Year
  Sex: Female
  Weight: 86 kg

DRUGS (4)
  1. BONVIVA [Suspect]
     Active Substance: IBANDRONATE SODIUM
     Indication: OSTEOPOROSIS
     Dosage: FILM COATED TABLET
     Route: 048
     Dates: start: 20160703, end: 20160703
  2. RENITEC (PORTUGAL) [Concomitant]
     Indication: HYPERTENSION
     Route: 048
     Dates: start: 2012
  3. BRUFEN [Concomitant]
     Active Substance: IBUPROFEN
     Indication: PAIN
     Route: 048
     Dates: start: 2014
  4. CALCIUM CARBONATE/CHOLECALCIFEROL [Concomitant]
     Active Substance: CALCIUM CARBONATE\CHOLECALCIFEROL
     Indication: OSTEOPOROSIS
     Dosage: DRUG REPORTED AS CALCIUM D SANDOZ?1500MG/400 IU
     Route: 048
     Dates: start: 20160702

REACTIONS (5)
  - Joint swelling [Recovering/Resolving]
  - Chest pain [Recovering/Resolving]
  - Abdominal pain [Recovered/Resolved]
  - Bone pain [Recovered/Resolved]
  - Haematoma [Recovering/Resolving]

NARRATIVE: CASE EVENT DATE: 20160703
